FAERS Safety Report 14336402 (Version 3)
Quarter: 2018Q2

REPORT INFORMATION
  Report Type: Other
  Country: IT (occurrence: IT)
  Receive Date: 20171229
  Receipt Date: 20180422
  Transmission Date: 20180711
  Serious: Yes (Death, Life-Threatening, Hospitalization, Other)
  Sender: FDA-Public Use
  Company Number: IT-APOTEX-2017AP023752

PATIENT
  Age: 50 Year
  Sex: Male

DRUGS (1)
  1. AMLODIPINE [Suspect]
     Active Substance: AMLODIPINE BESYLATE
     Indication: PRODUCT USED FOR UNKNOWN INDICATION
     Dosage: UNK, PRN, FREQUENCY DRUG TAKEN OCCASIONALLY
     Route: 048

REACTIONS (7)
  - Pulmonary oedema [Fatal]
  - Toxicity to various agents [Fatal]
  - Pulmonary congestion [Fatal]
  - Apnoea [Fatal]
  - Death [Fatal]
  - Treatment noncompliance [Unknown]
  - Unresponsive to stimuli [Fatal]
